FAERS Safety Report 4804016-2 (Version None)
Quarter: 2005Q4

REPORT INFORMATION
  Report Type: 
  Country: None (occurrence: None)
  Receive Date: 20051014
  Receipt Date: 20050930
  Transmission Date: 20060501
  Serious: Yes (Death, Hospitalization)
  Sender: FDA-Public Use
  Company Number: 2003-06113

PATIENT
  Age: 17 Year
  Sex: Female

DRUGS (6)
  1. VIREAD [Suspect]
     Indication: HIV INFECTION
     Dosage: 300 MG ONCE A DAY
     Dates: start: 20020301, end: 20021201
  2. STAVUDINE [Suspect]
     Indication: HIV INFECTION
     Dosage: 40 MG, TWICE A DAY
     Dates: start: 20020801, end: 20021201
  3. DIDANOSINE [Suspect]
     Indication: HIV INFECTION
     Dosage: 400 MG, ONCE A DAY
     Dates: start: 20020801, end: 20021201
  4. AMPRENAVIR (AMPRENAVIR) [Suspect]
     Indication: HIV INFECTION
     Dosage: 600 MG, TWICE A DAY
     Dates: start: 20020201, end: 20021201
  5. PENTAMIDINE [Concomitant]
  6. CIPROFLOXACIN [Concomitant]

REACTIONS (36)
  - ABASIA [None]
  - ALANINE AMINOTRANSFERASE INCREASED [None]
  - ASPARTATE AMINOTRANSFERASE INCREASED [None]
  - ASTHENIA [None]
  - BLOOD ALKALINE PHOSPHATASE INCREASED [None]
  - BLOOD BICARBONATE DECREASED [None]
  - BLOOD BILIRUBIN INCREASED [None]
  - BLOOD CREATINE PHOSPHOKINASE INCREASED [None]
  - BLOOD LACTATE DEHYDROGENASE INCREASED [None]
  - BLOOD PH DECREASED [None]
  - CANDIDIASIS [None]
  - COUGH [None]
  - DYSPNOEA [None]
  - DYSSTASIA [None]
  - EAR PAIN [None]
  - GUILLAIN-BARRE SYNDROME [None]
  - HAEMODYNAMIC INSTABILITY [None]
  - HEADACHE [None]
  - HEPATOSPLENOMEGALY [None]
  - HEPATOTOXICITY [None]
  - HYPOTENSION [None]
  - LACTIC ACIDOSIS [None]
  - LIPODYSTROPHY ACQUIRED [None]
  - LYMPHADENOPATHY [None]
  - MALAISE [None]
  - MUSCULAR WEAKNESS [None]
  - NEUTROPENIA [None]
  - OTITIS MEDIA ACUTE [None]
  - OXYGEN SATURATION DECREASED [None]
  - PAIN IN EXTREMITY [None]
  - PCO2 DECREASED [None]
  - PO2 INCREASED [None]
  - PYREXIA [None]
  - RESPIRATORY FAILURE [None]
  - SINUS TACHYCARDIA [None]
  - VOMITING [None]
